FAERS Safety Report 6067355-6 (Version None)
Quarter: 2009Q1

REPORT INFORMATION
  Report Type: 
  Country: None (occurrence: None)
  Receive Date: 20090204
  Receipt Date: 20090204
  Transmission Date: 20090719
  Serious: No
  Sender: FDA-Public Use
  Company Number: None

PATIENT
  Sex: Female
  Weight: 43.5453 kg

DRUGS (6)
  1. LIPITOR [Suspect]
     Indication: BLOOD CHOLESTEROL INCREASED
     Dosage: 20 MG DAILY PO A FEW YEARS
     Route: 048
  2. LOTENSIN [Concomitant]
  3. MULTI-VITAMIN [Concomitant]
  4. GLUCOSAMINE [Concomitant]
  5. CALCIUM [Concomitant]
  6. FISH OIL [Concomitant]

REACTIONS (1)
  - NEUTROPENIA [None]
